FAERS Safety Report 10172014 (Version 1)
Quarter: 2014Q2

REPORT INFORMATION
  Report Type: Spontaneous
  Country: US (occurrence: US)
  Receive Date: 20140515
  Receipt Date: 20140515
  Transmission Date: 20141212
  Serious: Yes (Other)
  Sender: FDA-Public Use
  Company Number: US-JNJCP-30000219758

PATIENT
  Sex: Female
  Weight: 59 kg

DRUGS (1)
  1. AVEENO MOISTURIZING [Suspect]
     Indication: DRY SKIN PROPHYLAXIS
     Dosage: NICKEL SIZED AMOUNT, TWICE DAILY
     Route: 061

REACTIONS (1)
  - Malignant melanoma [Recovered/Resolved]
